FAERS Safety Report 5324910-6 (Version None)
Quarter: 2007Q2

REPORT INFORMATION
  Report Type: 
  Country: None (occurrence: None)
  Receive Date: 20070515
  Receipt Date: 20070510
  Transmission Date: 20071010
  Serious: Yes (Hospitalization, Other)
  Sender: FDA-Public Use
  Company Number: PHBS2007SK07962

PATIENT
  Age: 30 Year
  Sex: Female

DRUGS (4)
  1. EUTHYROX [Concomitant]
  2. CETIRIZINE HCL [Concomitant]
  3. CEFOTAXIME [Concomitant]
  4. PARLODEL [Suspect]
     Indication: HYPERPROLACTINAEMIA
     Dosage: 1 TABLET/DAY
     Route: 048
     Dates: start: 20060101, end: 20070321

REACTIONS (1)
  - URTICARIA [None]
